FAERS Safety Report 5816613-6 (Version None)
Quarter: 2008Q3

REPORT INFORMATION
  Report Type: 
  Country: None (occurrence: None)
  Receive Date: 20080721
  Receipt Date: 20080710
  Transmission Date: 20090109
  Serious: Yes (Death)
  Sender: FDA-Public Use
  Company Number: US-KINGPHARMUSA00001-K200800831

PATIENT

DRUGS (2)
  1. SKELAXIN [Interacting]
     Indication: MUSCLE SPASMS
     Dosage: 800 MG, QID
     Route: 048
     Dates: start: 20080701, end: 20080701
  2. BENADRYL [Suspect]

REACTIONS (1)
  - DRUG TOXICITY [None]
